FAERS Safety Report 24372666 (Version 3)
Quarter: 2025Q3

REPORT INFORMATION
  Report Type: Report from Study
  Country: US (occurrence: US)
  Receive Date: 20240927
  Receipt Date: 20250814
  Transmission Date: 20251020
  Serious: Yes (Other)
  Sender: ABBVIE
  Company Number: US-ABBVIE-5933732

PATIENT
  Age: 46 Year
  Sex: Female

DRUGS (3)
  1. SKYRIZI [Suspect]
     Active Substance: RISANKIZUMAB-RZAA
     Indication: Psoriatic arthropathy
     Route: 058
     Dates: start: 20240722, end: 20240722
  2. SKYRIZI [Suspect]
     Active Substance: RISANKIZUMAB-RZAA
     Route: 058
     Dates: start: 20240825, end: 20240825
  3. SKYRIZI [Suspect]
     Active Substance: RISANKIZUMAB-RZAA
     Dosage: DOSAGE: 150 MG/ML FORM STRENGTH- 150MG/ML
     Route: 058
     Dates: start: 20241222, end: 20241222

REACTIONS (11)
  - Intervertebral disc operation [Unknown]
  - Psoriatic arthropathy [Recovered/Resolved]
  - Procedural nausea [Recovered/Resolved]
  - Post procedural complication [Recovered/Resolved]
  - Mobility decreased [Unknown]
  - Arthropathy [Not Recovered/Not Resolved]
  - Odynophagia [Not Recovered/Not Resolved]
  - Ear pain [Unknown]
  - Joint range of motion decreased [Recovering/Resolving]
  - Masticatory pain [Not Recovered/Not Resolved]
  - Skin disorder [Unknown]

NARRATIVE: CASE EVENT DATE: 20240801
